FAERS Safety Report 5786430-4 (Version None)
Quarter: 2008Q2

REPORT INFORMATION
  Report Type: 
  Country: None (occurrence: None)
  Receive Date: 20080624
  Receipt Date: 20070925
  Transmission Date: 20081010
  Serious: No
  Sender: FDA-Public Use
  Company Number: US-ASTRAZENECA-2007UW17133

PATIENT
  Age: 60 Year
  Sex: Female

DRUGS (2)
  1. PULMICORT-100 [Suspect]
     Indication: ASTHMA
     Route: 055
  2. DILTIAZEM [Concomitant]

REACTIONS (3)
  - DEVICE MALFUNCTION [None]
  - OEDEMA MOUTH [None]
  - PHARYNGEAL OEDEMA [None]
